FAERS Safety Report 25203283 (Version 1)
Quarter: 2025Q2

REPORT INFORMATION
  Report Type: Spontaneous
  Country: US (occurrence: None)
  Receive Date: 20250415
  Receipt Date: 20250415
  Transmission Date: 20250716
  Serious: No
  Sender: FDA-CTU
  Company Number: None

PATIENT
  Age: 77 Year
  Sex: Male

DRUGS (1)
  1. XDEMVY [Suspect]
     Active Substance: LOTILANER
     Indication: Acariasis
     Dosage: FREQUENCY : TWICE A DAY;?
     Route: 047

REACTIONS (1)
  - Dry eye [None]

NARRATIVE: CASE EVENT DATE: 20250327
